FAERS Safety Report 8687939 (Version 6)
Quarter: 2013Q1

REPORT INFORMATION
  Report Type: Report from Study
  Country: TR (occurrence: TR)
  Receive Date: 20120727
  Receipt Date: 20130311
  Transmission Date: 20140127
  Serious: Yes (Hospitalization)
  Sender: FDA-Public Use
  Company Number: TR-BRISTOL-MYERS SQUIBB COMPANY-16783607

PATIENT
  Age: 65 Year
  Sex: Male
  Weight: 67 kg

DRUGS (8)
  1. CISPLATIN [Suspect]
     Indication: NON-SMALL CELL LUNG CANCER STAGE III
     Dosage: 21MAY12-11JUN12;22D,02JUL12-02JUL12;1D,LAST DOSE ON 2JUL12,50MG/M2
     Route: 042
     Dates: start: 20120521, end: 20120702
  2. ALIMTA [Suspect]
     Indication: NON-SMALL CELL LUNG CANCER STAGE III
     Dosage: 21MAY12-11JUN12;22D,LAST DOSE ON 2JUL12,375MG/M2
     Route: 042
     Dates: start: 20120521, end: 20120702
  3. FOLIC ACID [Concomitant]
  4. VITAMIN B12 [Concomitant]
  5. DEXAMETHASONE [Concomitant]
     Indication: PROPHYLAXIS
  6. ANTEPSIN [Concomitant]
     Indication: MUCOSAL INFLAMMATION
     Dates: start: 20120528
  7. KYTRIL [Concomitant]
     Indication: VOMITING
     Dates: start: 20120528
  8. ISOSOURCE [Concomitant]
     Indication: MALNUTRITION
     Dates: start: 20120622, end: 20120710

REACTIONS (4)
  - Weight decreased [Not Recovered/Not Resolved]
  - Oesophagitis [Recovered/Resolved]
  - Mucosal inflammation [Unknown]
  - Vomiting [Unknown]
